FAERS Safety Report 9539908 (Version 2)
Quarter: 2013Q3

REPORT INFORMATION
  Report Type: Spontaneous
  Country: US (occurrence: US)
  Receive Date: 20130920
  Receipt Date: 20130920
  Transmission Date: 20140515
  Serious: Yes (Other)
  Sender: FDA-Public Use
  Company Number: US-NAPPMUNDI-USA_2009_0036528

PATIENT
  Sex: Female
  Weight: 36.28 kg

DRUGS (1)
  1. DILAUDID TABLET [Suspect]
     Indication: PAIN
     Dosage: UNK UNK, SEE TEXT

REACTIONS (2)
  - Hallucination [Recovered/Resolved]
  - Drug hypersensitivity [Unknown]
